FAERS Safety Report 12009248 (Version 2)
Quarter: 2020Q3

REPORT INFORMATION
  Report Type: Report from Study
  Country: JP (occurrence: JP)
  Receive Date: 20160205
  Receipt Date: 20160226
  Transmission Date: 20201105
  Serious: Yes (Hospitalization)
  Sender: FDA-Public Use
  Company Number: JP-ROCHE-1523844

PATIENT
  Age: 44 Year
  Sex: Female
  Weight: 50 kg

DRUGS (4)
  1. CALONAL [Concomitant]
     Active Substance: ACETAMINOPHEN
     Dosage: SINGLE USE
     Route: 048
  2. ALECTINIB. [Suspect]
     Active Substance: ALECTINIB
     Indication: LUNG ADENOCARCINOMA
     Route: 048
     Dates: start: 20141211, end: 20141224
  3. HIRUDOID OINTMENT [Concomitant]
     Indication: PROPHYLAXIS
     Dosage: TAKEN AS NEEDED
     Route: 003
     Dates: start: 20141212
  4. ALECTINIB. [Suspect]
     Active Substance: ALECTINIB
     Dosage: MOST RECENT DOSE ON 27/OCT/2015
     Route: 048
     Dates: start: 20150107

REACTIONS (5)
  - White blood cell count decreased [Recovered/Resolved]
  - Aspartate aminotransferase increased [Recovered/Resolved]
  - Blood creatinine increased [Recovered/Resolved]
  - Rash [Recovered/Resolved]
  - Neutrophil count decreased [Recovered/Resolved]

NARRATIVE: CASE EVENT DATE: 20141217
